FAERS Safety Report 8914760 (Version 1)
Quarter: 2012Q4

REPORT INFORMATION
  Report Type: 
  Country: US (occurrence: US)
  Receive Date: 20121119
  Receipt Date: 20121119
  Transmission Date: 20130627
  Serious: Yes (Other)
  Sender: FDA-Public Use
  Company Number: US-BAYER-2012-096301

PATIENT
  Age: 48 Year
  Sex: Female

DRUGS (2)
  1. BETASERON [Suspect]
     Indication: MULTIPLE SCLEROSIS
     Dosage: 8 miu, UNK
     Route: 058
     Dates: start: 20080221
  2. TYLENOL PM [Concomitant]
     Indication: PREMEDICATION
     Dosage: 2 DF, UNK

REACTIONS (7)
  - Injection site infection [Recovering/Resolving]
  - Injection site pruritus [Recovering/Resolving]
  - Injection site scab [Recovering/Resolving]
  - Pyrexia [Not Recovered/Not Resolved]
  - Chills [Not Recovered/Not Resolved]
  - Pain [Not Recovered/Not Resolved]
  - Injection site reaction [Not Recovered/Not Resolved]
